FAERS Safety Report 6399460-9 (Version None)
Quarter: 2009Q4

REPORT INFORMATION
  Report Type: 
  Country: None (occurrence: None)
  Receive Date: 20091008
  Receipt Date: 20091008
  Transmission Date: 20100525
  Serious: Yes (Other)
  Sender: FDA-Public Use
  Company Number: None

PATIENT
  Age: 85 Year
  Sex: Female
  Weight: 55.3388 kg

DRUGS (1)
  1. SEROQUEL [Suspect]
     Indication: SLEEP DISORDER
     Dosage: 25MG 1/2 TAB HS P.O.
     Route: 048
     Dates: start: 20091001

REACTIONS (6)
  - ARTHRALGIA [None]
  - BRADYCARDIA [None]
  - DYSPHAGIA [None]
  - DYSPNOEA [None]
  - EXTRASYSTOLES [None]
  - MUSCULOSKELETAL STIFFNESS [None]
